FAERS Safety Report 17251162 (Version 1)
Quarter: 2020Q1

REPORT INFORMATION
  Report Type: Other
  Country: GB (occurrence: GB)
  Receive Date: 20200109
  Receipt Date: 20200109
  Transmission Date: 20200409
  Serious: Yes (Other)
  Sender: FDA-Public Use
  Company Number: GB-STRIDES ARCOLAB LIMITED-2020SP000156

PATIENT
  Age: 43 Year
  Sex: Female

DRUGS (5)
  1. CIDOFOVIR. [Concomitant]
     Active Substance: CIDOFOVIR
     Indication: CYTOMEGALOVIRUS COLITIS
     Dosage: 1 MILLIGRAM/KILOGRAM, UNKNOWN
     Route: 042
     Dates: start: 20191218
  2. VANCOMYCIN [Suspect]
     Active Substance: VANCOMYCIN
     Indication: CLOSTRIDIUM DIFFICILE INFECTION
     Dosage: UNK
     Route: 048
  3. LETERMOVIR [Suspect]
     Active Substance: LETERMOVIR
     Indication: CYTOMEGALOVIRUS COLITIS
     Dosage: 480 MILLIGRAM, QD (EVERY 24 HOURS)
     Route: 048
     Dates: end: 20191028
  4. VALGANCICLOVIR. [Suspect]
     Active Substance: VALGANCICLOVIR
     Indication: CYTOMEGALOVIRUS COLITIS
     Dosage: 900 MILLIGRAM, EVERY 12 HRS
     Route: 048
     Dates: start: 20191028, end: 20191128
  5. FOSCAVIR [Suspect]
     Active Substance: FOSCARNET SODIUM
     Indication: CYTOMEGALOVIRUS COLITIS
     Dosage: 50 MILLIGRAM/KILOGRAM, EVERY 12 HRS, SOLUTION FOR INFUSION
     Route: 042
     Dates: start: 20191128

REACTIONS (2)
  - Complications of transplanted kidney [Unknown]
  - Acute kidney injury [Unknown]
